FAERS Safety Report 5750117-4 (Version None)
Quarter: 2008Q2

REPORT INFORMATION
  Report Type: 
  Country: None (occurrence: None)
  Receive Date: 20080527
  Receipt Date: 20080520
  Transmission Date: 20081010
  Serious: Yes (Hospitalization)
  Sender: FDA-Public Use
  Company Number: GB-PFIZER INC-2007100039

PATIENT
  Sex: Male
  Weight: 84 kg

DRUGS (9)
  1. SU-011,248 [Suspect]
     Indication: RENAL CELL CARCINOMA
     Route: 048
  2. LANSOPRAZOLE [Concomitant]
     Route: 048
  3. PREDNISOLONE [Concomitant]
     Route: 048
  4. BONJELA [Concomitant]
     Route: 002
     Dates: start: 20060601, end: 20070301
  5. DOCUSATE SODIUM [Concomitant]
     Route: 048
  6. SENOKOT [Concomitant]
     Route: 048
  7. LACTULOSE [Concomitant]
     Route: 048
  8. CLEXANE [Concomitant]
     Route: 058
  9. DIAZEPAM [Concomitant]
     Route: 048

REACTIONS (2)
  - DEHYDRATION [None]
  - URINARY TRACT INFECTION [None]
